FAERS Safety Report 8263797-9 (Version None)
Quarter: 2012Q2

REPORT INFORMATION
  Report Type: 
  Country: None (occurrence: None)
  Receive Date: 20120405
  Receipt Date: 20120327
  Transmission Date: 20120825
  Serious: Yes (Other)
  Sender: FDA-Public Use
  Company Number: PR-ABBOTT-12P-131-0889758-00

PATIENT
  Sex: Female
  Weight: 78.088 kg

DRUGS (12)
  1. CATAPHLAN [Concomitant]
     Indication: FIBROMYALGIA
  2. HUMIRA [Suspect]
     Indication: RHEUMATOID ARTHRITIS
     Route: 058
     Dates: start: 20100101, end: 20120307
  3. NEURONTIN [Concomitant]
     Indication: FIBROMYALGIA
  4. CALAN [Concomitant]
     Indication: HYPERTENSION
     Route: 048
     Dates: start: 20070101
  5. UNKNOWN MEDICATION [Concomitant]
     Indication: DEPRESSION
     Dosage: 1 TABLET DAILY AS NEEDED
     Dates: start: 20100301
  6. SIMVASTATIN [Concomitant]
     Indication: HYPERCHOLESTEROLAEMIA
     Route: 048
     Dates: start: 20111201
  7. KLONOPIN [Concomitant]
     Indication: DEPRESSION
     Dosage: 1 TABLET DAILY AS NEEDED
     Route: 048
     Dates: start: 20100301
  8. HUMIRA [Suspect]
     Route: 058
     Dates: start: 20120322
  9. NEURONTIN [Concomitant]
     Indication: RHEUMATOID ARTHRITIS
     Route: 048
     Dates: start: 20120101
  10. ZOLOFT [Concomitant]
     Indication: DEPRESSION
     Dosage: 1 TABLET DAILY AS NEEDED
     Route: 048
     Dates: start: 20100301
  11. CATAPHLAN [Concomitant]
     Indication: RHEUMATOID ARTHRITIS
     Route: 048
     Dates: start: 20111201
  12. TEMAZEPAM [Concomitant]
     Indication: DEPRESSION
     Dosage: 1 TABLET AT BEDTIME AS NEEDED
     Route: 048
     Dates: start: 20100301

REACTIONS (2)
  - FIBROMA [None]
  - ASTHMA [None]
